FAERS Safety Report 19184192 (Version 1)
Quarter: 2021Q2

REPORT INFORMATION
  Report Type: Spontaneous
  Country: US (occurrence: US)
  Receive Date: 20210426
  Receipt Date: 20210426
  Transmission Date: 20210717
  Serious: Yes (Hospitalization)
  Sender: FDA-Public Use
  Company Number: None

PATIENT
  Age: 60 Year
  Sex: Female

DRUGS (1)
  1. COLISTIMETHATE SOD 150MG PAR STERILE PRODUCTS [Suspect]
     Active Substance: COLISTIMETHATE SODIUM
     Indication: BRONCHIECTASIS
     Dosage: ?          OTHER ROUTE:NEBULIZED?
     Dates: start: 20200703

REACTIONS (2)
  - Condition aggravated [None]
  - Pseudomonas test positive [None]

NARRATIVE: CASE EVENT DATE: 20210319
